FAERS Safety Report 4448749-9 (Version None)
Quarter: 2004Q3

REPORT INFORMATION
  Report Type: 
  Country: None (occurrence: None)
  Receive Date: 20040909
  Receipt Date: 20040909
  Transmission Date: 20050211
  Serious: Yes (Other)
  Sender: FDA-Public Use
  Company Number: None

PATIENT
  Age: 53 Year
  Sex: Female

DRUGS (8)
  1. AMBIEN [Suspect]
     Indication: SOMNOLENCE
     Dosage: 10 MG AT HS PO
     Route: 048
     Dates: start: 20040516, end: 20030523
  2. LEXAPRO [Suspect]
     Dosage: 10 MG QD PO
     Route: 048
     Dates: start: 20040516, end: 20040523
  3. ZESTRIL [Concomitant]
  4. NORVASC [Concomitant]
  5. VANCOCIN HCL [Concomitant]
  6. FLAGYL [Concomitant]
  7. DIFLUCAN [Concomitant]
  8. PHENERGAN HCL [Concomitant]

REACTIONS (2)
  - HALLUCINATION [None]
  - SPEECH DISORDER [None]
